FAERS Safety Report 10547319 (Version 2)
Quarter: 2014Q4

REPORT INFORMATION
  Report Type: Spontaneous
  Country: DE (occurrence: DE)
  Receive Date: 20141028
  Receipt Date: 20141028
  Transmission Date: 20150529
  Serious: Yes (Other)
  Sender: FDA-Public Use
  Company Number: DE-ROCHE-1426156

PATIENT
  Age: 62 Year
  Sex: Male
  Weight: 49 kg

DRUGS (7)
  1. AVASTIN [Suspect]
     Active Substance: BEVACIZUMAB
     Indication: NON-SMALL CELL LUNG CANCER
     Dosage: = 370 MG; 5 CYCLES
     Route: 042
     Dates: start: 20140305, end: 20140527
  2. ZANTAC [Concomitant]
     Active Substance: RANITIDINE HYDROCHLORIDE
     Indication: PROPHYLAXIS
     Dosage: 6 CYCLES
     Route: 042
     Dates: start: 20140305, end: 20140617
  3. GRANISETRON [Concomitant]
     Active Substance: GRANISETRON
     Indication: PROPHYLAXIS
     Dosage: 6 CYCLES
     Route: 042
     Dates: start: 20140305, end: 20140617
  4. FENISTIL (GERMANY) [Concomitant]
     Indication: PROPHYLAXIS
     Dosage: 6 CYCLES
     Route: 042
     Dates: start: 20140305, end: 20140617
  5. CARBOPLATIN. [Concomitant]
     Active Substance: CARBOPLATIN
     Indication: NON-SMALL CELL LUNG CANCER
     Dosage: AUC 6; 6 CYCLES
     Route: 042
     Dates: start: 20140305, end: 20140617
  6. PACLITAXEL. [Concomitant]
     Active Substance: PACLITAXEL
     Indication: NON-SMALL CELL LUNG CANCER
     Dosage: 6 CYCLES
     Route: 042
     Dates: start: 20140305, end: 20140617
  7. DEXAMETHASONE. [Concomitant]
     Active Substance: DEXAMETHASONE
     Indication: NON-SMALL CELL LUNG CANCER
     Route: 042
     Dates: start: 20140305, end: 20140617

REACTIONS (1)
  - Amaurosis fugax [Recovered/Resolved]

NARRATIVE: CASE EVENT DATE: 20140527
